FAERS Safety Report 5322373-8 (Version None)
Quarter: 2007Q2

REPORT INFORMATION
  Report Type: 
  Country: None (occurrence: None)
  Receive Date: 20070511
  Receipt Date: 20070430
  Transmission Date: 20071010
  Serious: Yes (Other)
  Sender: FDA-Public Use
  Company Number: US-ASTRAZENECA-2007UW08813

PATIENT
  Sex: Female
  Weight: 100 kg

DRUGS (3)
  1. SEROQUEL [Suspect]
     Route: 048
  2. RISPERDAL [Concomitant]
     Dates: start: 19960101
  3. ZYPREXA [Concomitant]

REACTIONS (2)
  - CARDIAC FAILURE [None]
  - DIABETES MELLITUS [None]
